FAERS Safety Report 7344806-8 (Version None)
Quarter: 2011Q1

REPORT INFORMATION
  Report Type: 
  Country: None (occurrence: None)
  Receive Date: 20110228
  Receipt Date: 20110210
  Transmission Date: 20110831
  Serious: Yes (Hospitalization)
  Sender: FDA-Public Use
  Company Number: 11-023

PATIENT
  Age: 43 Year
  Sex: Female

DRUGS (1)
  1. IBUPROFEN [Suspect]
     Dosage: ORAL
     Route: 048

REACTIONS (8)
  - RENAL FAILURE ACUTE [None]
  - HAEMODIALYSIS [None]
  - RHABDOMYOLYSIS [None]
  - SCIATIC NERVE NEUROPATHY [None]
  - INTENTIONAL OVERDOSE [None]
  - UNRESPONSIVE TO STIMULI [None]
  - METABOLIC ACIDOSIS [None]
  - NERVE INJURY [None]
